FAERS Safety Report 12111335 (Version 2)
Quarter: 2016Q1

REPORT INFORMATION
  Report Type: Report from Study
  Country: US (occurrence: US)
  Receive Date: 20160224
  Receipt Date: 20160322
  Transmission Date: 20160526
  Serious: Yes (Other)
  Sender: FDA-Public Use
  Company Number: US-009507513-1602USA010094

PATIENT

DRUGS (2)
  1. REBETOL [Suspect]
     Active Substance: RIBAVIRIN
     Indication: HEPATITIS CHOLESTATIC
     Dosage: 12 OR 24 WEEKS OF LDV/SOF WITH RIBAVIRIN
     Route: 048
  2. LEDIPASVIR (+) SOFOSBUVIR [Suspect]
     Active Substance: LEDIPASVIR\SOFOSBUVIR
     Indication: HEPATITIS CHOLESTATIC
     Dosage: 12 OR 24 WEEKS OF LDV/SOF WITH RIBAVIRIN

REACTIONS (1)
  - Dyspnoea [Unknown]
